FAERS Safety Report 11100065 (Version 2)
Quarter: 2015Q2

REPORT INFORMATION
  Report Type: Report from Study
  Country: GB (occurrence: GB)
  Receive Date: 20150508
  Receipt Date: 20150514
  Transmission Date: 20150821
  Serious: Yes (Other)
  Sender: FDA-Public Use
  Company Number: GB-ABBVIE-15K-167-1383418-00

PATIENT
  Age: 48 Year
  Sex: Male

DRUGS (1)
  1. HUMIRA [Suspect]
     Active Substance: ADALIMUMAB
     Indication: PRODUCT USED FOR UNKNOWN INDICATION
     Route: 065
     Dates: end: 20150424

REACTIONS (10)
  - Haemorrhage [Unknown]
  - Crohn^s disease [Unknown]
  - Eye pain [Unknown]
  - Abscess [Unknown]
  - Limb discomfort [Unknown]
  - Pain [Unknown]
  - Pain of skin [Unknown]
  - Mouth ulceration [Unknown]
  - Nasal ulcer [Unknown]
  - Lymphadenopathy [Unknown]

NARRATIVE: CASE EVENT DATE: 201504
